FAERS Safety Report 5731276-6 (Version None)
Quarter: 2008Q2

REPORT INFORMATION
  Report Type: 
  Country: None (occurrence: None)
  Receive Date: 20080505
  Receipt Date: 20080424
  Transmission Date: 20081010
  Serious: Yes (Hospitalization)
  Sender: FDA-Public Use
  Company Number: GXKR2008JP03935

PATIENT
  Age: 8 Year
  Sex: Male

DRUGS (2)
  1. CEFDINIR (NGX)(CEFDINIR) UNKNOWN [Suspect]
     Indication: PYREXIA
     Dosage: TID, 300 MG DAILY,
  2. ACETAMINOPHEN [Suspect]
     Indication: PYREXIA
     Dosage: TID, 600 MG DAILY,

REACTIONS (8)
  - ERYTHEMA MULTIFORME [None]
  - HEPATIC FUNCTION ABNORMAL [None]
  - IMMUNE SYSTEM DISORDER [None]
  - INFECTION [None]
  - INTERLEUKIN LEVEL INCREASED [None]
  - LEUKOPENIA [None]
  - LYMPHOCYTE STIMULATION TEST POSITIVE [None]
  - VANISHING BILE DUCT SYNDROME [None]
